FAERS Safety Report 24742499 (Version 2)
Quarter: 2024Q4

REPORT INFORMATION
  Report Type: Spontaneous
  Country: GR (occurrence: GR)
  Receive Date: 20241217
  Receipt Date: 20241224
  Transmission Date: 20250115
  Serious: Yes (Hospitalization)
  Sender: Unknown Manufacturer
  Company Number: GR-MIRUM PHARMACEUTICALS INTERNATIONAL B.V.-GR-MIR-24-00968

PATIENT

DRUGS (3)
  1. LIVMARLI [Suspect]
     Active Substance: MARALIXIBAT CHLORIDE
     Indication: Cholestatic pruritus
     Dosage: 0.8 MILLILITER, QD
     Route: 048
     Dates: start: 202408, end: 20241112
  2. URSODIOL [Concomitant]
     Active Substance: URSODIOL
     Indication: Hepatobiliary disease
     Dosage: 3.6 MILLILITER, BID
     Route: 048
     Dates: start: 201909
  3. URSODIOL [Concomitant]
     Active Substance: URSODIOL
     Indication: Liver disorder

REACTIONS (3)
  - Liver transplant [Recovered/Resolved]
  - Drug ineffective for unapproved indication [Unknown]
  - Off label use [Recovered/Resolved]

NARRATIVE: CASE EVENT DATE: 20240801
